FAERS Safety Report 14986374 (Version 3)
Quarter: 2018Q3

REPORT INFORMATION
  Report Type: Spontaneous
  Country: JP (occurrence: JP)
  Receive Date: 20180607
  Receipt Date: 20180903
  Transmission Date: 20181010
  Serious: Yes (Hospitalization, Other)
  Sender: FDA-Public Use
  Company Number: JP-ROCHE-2135431

PATIENT
  Age: 62 Year
  Sex: Male
  Weight: 59 kg

DRUGS (6)
  1. IRINOTECAN HYDROCHLORIDE. [Concomitant]
     Active Substance: IRINOTECAN HYDROCHLORIDE
     Indication: RECTAL CANCER
     Dosage: DOSAGE IS UNCERTAIN.
     Route: 041
     Dates: start: 20170809, end: 20180223
  2. IRINOTECAN HYDROCHLORIDE. [Concomitant]
     Active Substance: IRINOTECAN HYDROCHLORIDE
     Route: 065
     Dates: start: 20171128, end: 20180323
  3. XELODA [Suspect]
     Active Substance: CAPECITABINE
     Indication: RECTAL CANCER
     Dosage: DOSAGE IS UNCERTAIN.?LAST DOSE ON 04/MAY/2018
     Route: 048
     Dates: start: 20180427
  4. IRINOTECAN HYDROCHLORIDE. [Concomitant]
     Active Substance: IRINOTECAN HYDROCHLORIDE
     Route: 041
     Dates: start: 20180427, end: 20180514
  5. AVASTIN [Suspect]
     Active Substance: BEVACIZUMAB
     Indication: RECTAL CANCER
     Dosage: DOSAGE IS UNCERTAIN.?LAST DOSE ON 07/NOV/2017
     Route: 041
     Dates: start: 20170809
  6. AVASTIN [Suspect]
     Active Substance: BEVACIZUMAB
     Dosage: DOSAGE IS UNCERTAIN.
     Route: 041
     Dates: start: 20180126, end: 20180514

REACTIONS (3)
  - Diverticulitis [Unknown]
  - Hot flush [Unknown]
  - Large intestine perforation [Recovered/Resolved]

NARRATIVE: CASE EVENT DATE: 20180514
